FAERS Safety Report 13285428 (Version 1)
Quarter: 2017Q1

REPORT INFORMATION
  Report Type: Spontaneous
  Country: US (occurrence: US)
  Receive Date: 20170302
  Receipt Date: 20170302
  Transmission Date: 20170428
  Serious: Yes (Other)
  Sender: FDA-Public Use
  Company Number: None

PATIENT
  Age: 51 Year
  Sex: Male
  Weight: 161.4 kg

DRUGS (1)
  1. LIDOCAINE 2G/500ML [Suspect]
     Active Substance: LIDOCAINE
     Dosage: OTHER FREQUENCY:PER MIN;?
     Route: 041
     Dates: start: 20170224, end: 20170227

REACTIONS (7)
  - Screaming [None]
  - Speech disorder [None]
  - Inappropriate affect [None]
  - Hallucination, visual [None]
  - Confusional state [None]
  - Visual impairment [None]
  - Delirium [None]

NARRATIVE: CASE EVENT DATE: 20170227
